FAERS Safety Report 14802656 (Version 2)
Quarter: 2018Q2

REPORT INFORMATION
  Report Type: Spontaneous
  Country: US (occurrence: US)
  Receive Date: 20180424
  Receipt Date: 20180620
  Transmission Date: 20180711
  Serious: No
  Sender: FDA-Public Use
  Company Number: US-ACTELION-A-NJ2018-170431

PATIENT
  Age: 60 Year
  Sex: Female

DRUGS (12)
  1. CALCIUM [Concomitant]
     Active Substance: CALCIUM
  2. VENTOLIN [Concomitant]
     Active Substance: ALBUTEROL SULFATE
  3. OPSUMIT [Suspect]
     Active Substance: MACITENTAN
     Indication: PULMONARY ARTERIAL HYPERTENSION
     Dosage: 10 MG, QD
     Route: 048
     Dates: start: 20180304
  4. LOSARTAN. [Concomitant]
     Active Substance: LOSARTAN
  5. NABUMETONE. [Concomitant]
     Active Substance: NABUMETONE
  6. ALBUTEROL. [Concomitant]
     Active Substance: ALBUTEROL
  7. ALDACTONE [Concomitant]
     Active Substance: SPIRONOLACTONE
  8. GUAIFENESIN. [Concomitant]
     Active Substance: GUAIFENESIN
  9. DIAZEPAM. [Concomitant]
     Active Substance: DIAZEPAM
  10. NEURONTIN [Concomitant]
     Active Substance: GABAPENTIN
  11. PHENERGAN W/ CODEINE [Concomitant]
     Active Substance: CODEINE PHOSPHATE\PROMETHAZINE HYDROCHLORIDE
  12. ALLEGRA [Concomitant]
     Active Substance: FEXOFENADINE HYDROCHLORIDE

REACTIONS (8)
  - Bronchitis [Not Recovered/Not Resolved]
  - Malaise [Recovered/Resolved]
  - Fluid retention [Not Recovered/Not Resolved]
  - Productive cough [Not Recovered/Not Resolved]
  - Pyrexia [Recovered/Resolved]
  - Dysphonia [Not Recovered/Not Resolved]
  - Weight increased [Not Recovered/Not Resolved]
  - Fatigue [Not Recovered/Not Resolved]

NARRATIVE: CASE EVENT DATE: 20180315
